FAERS Safety Report 5498528-9 (Version None)
Quarter: 2007Q4

REPORT INFORMATION
  Report Type: 
  Country: None (occurrence: None)
  Receive Date: 20071026
  Receipt Date: 20071018
  Transmission Date: 20080405
  Serious: No
  Sender: FDA-Public Use
  Company Number: PHNU2007DE03480

PATIENT
  Sex: Male

DRUGS (1)
  1. PAMIDRONATE DISODIUM [Suspect]
     Indication: METASTASES TO BONE
     Dosage: UNK, QMO
     Route: 042
     Dates: start: 20070101

REACTIONS (2)
  - ORAL SURGERY [None]
  - TOOTH ABSCESS [None]
